FAERS Safety Report 8623497-X (Version None)
Quarter: 2012Q3

REPORT INFORMATION
  Report Type: 
  Country: None (occurrence: None)
  Receive Date: 20120827
  Receipt Date: 20120827
  Transmission Date: 20120928
  Serious: No
  Sender: FDA-Public Use
  Company Number: US-PFIZER INC-2012187424

PATIENT
  Age: 59 Year

DRUGS (40)
  1. METHOTREXATE [Suspect]
     Dosage: UNK
  2. SEPTRA [Suspect]
     Dosage: UNK
  3. PHENYLEPHRINE HYDROCHLORIDE [Suspect]
     Dosage: UNK
  4. CHLORPHENIRAMINE MALEATE [Suspect]
     Dosage: UNK
  5. ALBUTEROL SULFATE [Suspect]
     Dosage: UNK
  6. BACTRIM [Suspect]
     Dosage: UNK
  7. TETRACYCLINE HYDROCHLORIDE [Suspect]
     Dosage: UNK
  8. CHLORPHENIRAMINE MALEATE [Suspect]
     Dosage: UNK
  9. TRIPROLIDINE HYDROCHLORIDE [Suspect]
     Dosage: UNK
  10. LEFLUNOMIDE [Suspect]
     Dosage: UNK
  11. CECLOR [Suspect]
     Dosage: UNK
  12. AMLODIPINE BESYLATE [Suspect]
     Dosage: UNK
  13. CELEBREX [Suspect]
     Dosage: UNK
  14. MECLIZINE HCL [Suspect]
     Dosage: UNK
  15. PHENYLPROPANOLAMINE HCL [Suspect]
     Dosage: UNK
  16. NAPROSYN [Suspect]
     Dosage: UNK
  17. GEMIFLOXACIN MESYLATE [Suspect]
     Dosage: UNK
  18. SULFANILAMIDE [Suspect]
     Dosage: UNK
  19. ASTEMIZOLE [Suspect]
     Dosage: UNK
  20. LODINE [Suspect]
     Dosage: UNK
  21. MORPHINE SULFATE [Suspect]
     Dosage: UNK
  22. FOSINOPRIL SODIUM [Suspect]
     Dosage: UNK
  23. FLUTICASONE PROPIONATE [Suspect]
     Dosage: UNK
  24. CEFADROXIL [Suspect]
     Dosage: UNK
  25. CEFUROXIME [Suspect]
     Dosage: UNK
  26. DEXCHLORPHENIRAMINE MALEATE [Suspect]
     Dosage: UNK
  27. MOXIFLOXACIN HYDROCHLORIDE [Suspect]
     Dosage: UNK
  28. CODEINE SULFATE [Suspect]
     Dosage: UNK
  29. THEOPHYLLINE [Suspect]
     Dosage: UNK
  30. PSEUDOEPHEDRINE HYDROCHLORIDE [Suspect]
     Dosage: UNK
  31. PSEUDOEPHEDRINE SULFATE [Suspect]
     Dosage: UNK
  32. CODEINE PHOSPHATE [Suspect]
     Dosage: UNK
  33. DEMEROL [Suspect]
     Dosage: UNK
  34. ACETAMINOPHEN [Suspect]
     Dosage: UNK
  35. OXYMETAZOLINE HCL [Suspect]
     Dosage: UNK
  36. METHSCOPOLAMINE BROMIDE [Suspect]
     Dosage: UNK
  37. PHENYLTOLOXAMINE [Suspect]
     Dosage: UNK
  38. CROMOLYN SODIUM [Suspect]
     Dosage: UNK
  39. CAFFEINE CITRATE [Suspect]
     Dosage: UNK
  40. ASPIRIN [Suspect]
     Dosage: UNK

REACTIONS (1)
  - DRUG HYPERSENSITIVITY [None]
